FAERS Safety Report 25791176 (Version 1)
Quarter: 2025Q3

REPORT INFORMATION
  Report Type: Spontaneous
  Country: US (occurrence: US)
  Receive Date: 20250911
  Receipt Date: 20250911
  Transmission Date: 20251020
  Serious: Yes (Other)
  Sender: MYLAN
  Company Number: US-MYLANLABS-2025M1076918

PATIENT
  Age: 14 Year
  Sex: Female

DRUGS (32)
  1. DAPSONE [Suspect]
     Active Substance: DAPSONE
     Indication: Type I hypersensitivity
  2. DAPSONE [Suspect]
     Active Substance: DAPSONE
     Indication: Type IV hypersensitivity reaction
     Route: 065
  3. DAPSONE [Suspect]
     Active Substance: DAPSONE
     Route: 065
  4. DAPSONE [Suspect]
     Active Substance: DAPSONE
  5. MYCOPHENOLATE MOFETIL [Suspect]
     Active Substance: MYCOPHENOLATE MOFETIL
     Indication: Type I hypersensitivity
  6. MYCOPHENOLATE MOFETIL [Suspect]
     Active Substance: MYCOPHENOLATE MOFETIL
     Indication: Type IV hypersensitivity reaction
     Route: 065
  7. MYCOPHENOLATE MOFETIL [Suspect]
     Active Substance: MYCOPHENOLATE MOFETIL
     Route: 065
  8. MYCOPHENOLATE MOFETIL [Suspect]
     Active Substance: MYCOPHENOLATE MOFETIL
  9. CYCLOSPORINE [Suspect]
     Active Substance: CYCLOSPORINE
     Indication: Type I hypersensitivity
  10. CYCLOSPORINE [Suspect]
     Active Substance: CYCLOSPORINE
     Indication: Type IV hypersensitivity reaction
     Route: 065
  11. CYCLOSPORINE [Suspect]
     Active Substance: CYCLOSPORINE
     Route: 065
  12. CYCLOSPORINE [Suspect]
     Active Substance: CYCLOSPORINE
  13. UPADACITINIB [Suspect]
     Active Substance: UPADACITINIB
     Indication: Type I hypersensitivity
  14. UPADACITINIB [Suspect]
     Active Substance: UPADACITINIB
     Indication: Type IV hypersensitivity reaction
     Route: 065
  15. UPADACITINIB [Suspect]
     Active Substance: UPADACITINIB
     Route: 065
  16. UPADACITINIB [Suspect]
     Active Substance: UPADACITINIB
  17. PLAQUENIL [Suspect]
     Active Substance: HYDROXYCHLOROQUINE SULFATE
     Indication: Type I hypersensitivity
  18. PLAQUENIL [Suspect]
     Active Substance: HYDROXYCHLOROQUINE SULFATE
     Indication: Type IV hypersensitivity reaction
     Route: 065
  19. PLAQUENIL [Suspect]
     Active Substance: HYDROXYCHLOROQUINE SULFATE
     Route: 065
  20. PLAQUENIL [Suspect]
     Active Substance: HYDROXYCHLOROQUINE SULFATE
  21. OMALIZUMAB [Concomitant]
     Active Substance: OMALIZUMAB
     Indication: Type I hypersensitivity
     Dosage: 600 MILLIGRAM, Q2W (ONCE EVERY 2 WEEKS)
  22. OMALIZUMAB [Concomitant]
     Active Substance: OMALIZUMAB
     Indication: Type IV hypersensitivity reaction
     Dosage: 600 MILLIGRAM, Q2W (ONCE EVERY 2 WEEKS)
     Route: 065
  23. OMALIZUMAB [Concomitant]
     Active Substance: OMALIZUMAB
     Dosage: 600 MILLIGRAM, Q2W (ONCE EVERY 2 WEEKS)
     Route: 065
  24. OMALIZUMAB [Concomitant]
     Active Substance: OMALIZUMAB
     Dosage: 600 MILLIGRAM, Q2W (ONCE EVERY 2 WEEKS)
  25. DUPILUMAB [Concomitant]
     Active Substance: DUPILUMAB
     Indication: Type I hypersensitivity
     Dosage: 300 MILLIGRAM, QW
  26. DUPILUMAB [Concomitant]
     Active Substance: DUPILUMAB
     Indication: Type IV hypersensitivity reaction
     Dosage: 300 MILLIGRAM, QW
     Route: 065
  27. DUPILUMAB [Concomitant]
     Active Substance: DUPILUMAB
     Dosage: 300 MILLIGRAM, QW
     Route: 065
  28. DUPILUMAB [Concomitant]
     Active Substance: DUPILUMAB
     Dosage: 300 MILLIGRAM, QW
  29. TEZEPELUMAB [Concomitant]
     Active Substance: TEZEPELUMAB
     Indication: Type I hypersensitivity
  30. TEZEPELUMAB [Concomitant]
     Active Substance: TEZEPELUMAB
     Indication: Type IV hypersensitivity reaction
     Route: 065
  31. TEZEPELUMAB [Concomitant]
     Active Substance: TEZEPELUMAB
     Route: 065
  32. TEZEPELUMAB [Concomitant]
     Active Substance: TEZEPELUMAB

REACTIONS (2)
  - Drug ineffective for unapproved indication [Unknown]
  - Off label use [Unknown]
